FAERS Safety Report 13104611 (Version 1)
Quarter: 2017Q1

REPORT INFORMATION
  Report Type: Spontaneous
  Country: GB (occurrence: GB)
  Receive Date: 20170111
  Receipt Date: 20170111
  Transmission Date: 20170428
  Serious: Yes (Other)
  Sender: FDA-Public Use
  Company Number: GB-TEVA-727750ACC

PATIENT
  Age: 58 Year
  Sex: Female
  Weight: 63 kg

DRUGS (10)
  1. LORATADINE. [Suspect]
     Active Substance: LORATADINE
     Dates: start: 20161220
  2. ANUSOL NOS [Concomitant]
     Active Substance: BALSAM PERU\BENZYL BENZOATE\BISMUTH HYDROXIDE\BISMUTH SUBGALLATE\HYDROCORTISONE ACETATE\ZINC OXIDE
     Dosage: 1 DOSAGE FORMS DAILY;
     Dates: start: 20161202, end: 20161209
  3. CETRABEN EMOLLIENT CREAM [Concomitant]
     Dates: start: 20161202, end: 20161209
  4. DOVOBET [Concomitant]
     Active Substance: BETAMETHASONE\CALCIPOTRIENE
     Dosage: 1 DOSAGE FORMS DAILY;
     Dates: start: 20161202, end: 20161209
  5. DERMOL [Concomitant]
     Active Substance: BENZALKONIUM CHLORIDE\CHLORHEXIDINE HYDROCHLORIDE\ISOPROPYL MYRISTATE\PARAFFIN
     Dosage: AS SOAP.
     Dates: start: 20161202, end: 20161209
  6. DIPROSALIC [Concomitant]
     Active Substance: BETAMETHASONE DIPROPIONATE
     Dosage: 2 DOSAGE FORMS DAILY;
     Dates: start: 20161202, end: 20161209
  7. NITROFURANTOIN. [Concomitant]
     Active Substance: NITROFURANTOIN
     Dosage: 4 DOSAGE FORMS DAILY;
     Dates: start: 20161202, end: 20161209
  8. DIAZEPAM. [Concomitant]
     Active Substance: DIAZEPAM
     Indication: MUSCLE SPASMS
     Dosage: 2 DOSAGE FORMS DAILY;
     Dates: start: 20161129
  9. CODEINE PHOSPHATE [Concomitant]
     Active Substance: CODEINE PHOSPHATE
     Indication: PAIN
     Dosage: TAKE 1 TO 2, 4 TIMES/DAY AS NEEDED.
     Dates: start: 20161129
  10. CO-AMOXICLAV [Concomitant]
     Active Substance: AMOXICILLIN\CLAVULANIC ACID
     Dosage: 3 DOSAGE FORMS DAILY;
     Dates: start: 20161214, end: 20161221

REACTIONS (3)
  - Urticaria [Recovered/Resolved]
  - Aggression [Recovered/Resolved]
  - Hyperventilation [Recovered/Resolved]

NARRATIVE: CASE EVENT DATE: 20161220
